FAERS Safety Report 19778565 (Version 1)
Quarter: 2021Q3

REPORT INFORMATION
  Report Type: Spontaneous
  Country: US (occurrence: US)
  Receive Date: 20210831
  Receipt Date: 20210831
  Transmission Date: 20211014
  Serious: Yes (Hospitalization)
  Sender: FDA-Public Use
  Company Number: None

PATIENT
  Age: 61 Year
  Sex: Female

DRUGS (1)
  1. TADALAFIL 20 MG TAB [Suspect]
     Active Substance: TADALAFIL
     Indication: PULMONARY HYPERTENSION
     Dosage: TAKE 2 TABLETS BY MOUTH DAILY
     Route: 048
     Dates: start: 20191031

REACTIONS (1)
  - Fluid overload [None]

NARRATIVE: CASE EVENT DATE: 20210704
